FAERS Safety Report 5638190-5 (Version None)
Quarter: 2008Q1

REPORT INFORMATION
  Report Type: 
  Country: None (occurrence: None)
  Receive Date: 20080226
  Receipt Date: 20080220
  Transmission Date: 20080703
  Serious: Yes (Other)
  Sender: FDA-Public Use
  Company Number: JP-BRISTOL-MYERS SQUIBB COMPANY-14074066

PATIENT
  Age: 52 Year
  Sex: Female

DRUGS (3)
  1. GATIFLOXACIN [Suspect]
     Indication: ACUTE SINUSITIS
     Route: 048
     Dates: start: 20080110, end: 20080110
  2. MUCODYNE [Suspect]
     Indication: ACUTE SINUSITIS
     Route: 048
     Dates: start: 20080110, end: 20080110
  3. DASEN [Suspect]
     Indication: ACUTE SINUSITIS
     Route: 048
     Dates: start: 20080110, end: 20080110

REACTIONS (1)
  - ANAPHYLACTIC SHOCK [None]
